FAERS Safety Report 10232820 (Version 1)
Quarter: 2014Q2

REPORT INFORMATION
  Report Type: Spontaneous
  Country: US (occurrence: None)
  Receive Date: 20140611
  Receipt Date: 20140611
  Transmission Date: 20141212
  Serious: No
  Sender: FDA-Public Use
  Company Number: None

PATIENT
  Age: 56 Year
  Sex: Male
  Weight: 68.04 kg

DRUGS (1)
  1. ESZOPICLONE [Suspect]
     Indication: INSOMNIA
     Dosage: 1DOSE PER DAY
     Dates: start: 20140415, end: 20140609

REACTIONS (2)
  - Product substitution issue [None]
  - Drug effect decreased [None]
